FAERS Safety Report 18529981 (Version 6)
Quarter: 2024Q1

REPORT INFORMATION
  Report Type: Report from Study
  Country: ES (occurrence: ES)
  Receive Date: 20201120
  Receipt Date: 20240116
  Transmission Date: 20240410
  Serious: Yes (Other)
  Sender: FDA-Public Use
  Company Number: FR-TAKEDA-2020TUS046063

PATIENT
  Age: 48 Year
  Sex: Male
  Weight: 91 kg

DRUGS (53)
  1. ADVATE [Suspect]
     Active Substance: ANTIHEMOPHILIC FACTOR, HUMAN RECOMBINANT
     Indication: Factor VIII deficiency
     Dosage: UNK
     Route: 042
     Dates: start: 20120119
  2. ADVATE [Suspect]
     Active Substance: ANTIHEMOPHILIC FACTOR, HUMAN RECOMBINANT
     Indication: Factor VIII deficiency
     Dosage: UNK
     Route: 042
     Dates: start: 20120119
  3. ADVATE [Suspect]
     Active Substance: ANTIHEMOPHILIC FACTOR, HUMAN RECOMBINANT
     Indication: Factor VIII deficiency
     Dosage: UNK
     Route: 042
     Dates: start: 20120119
  4. ACECLOFENAC [Concomitant]
     Active Substance: ACECLOFENAC
     Indication: Arthropathy
     Dosage: 100 MILLIGRAM
     Route: 065
     Dates: start: 19980417
  5. ACECLOFENAC [Concomitant]
     Active Substance: ACECLOFENAC
     Indication: Back pain
     Dosage: UNK
     Route: 065
     Dates: start: 20120330, end: 20120401
  6. ACECLOFENAC [Concomitant]
     Active Substance: ACECLOFENAC
     Dosage: 100 MILLIGRAM
     Route: 065
     Dates: start: 20130518, end: 20130520
  7. ACECLOFENAC [Concomitant]
     Active Substance: ACECLOFENAC
     Dosage: 100 MILLIGRAM
     Route: 065
     Dates: start: 20140305, end: 20140307
  8. ACECLOFENAC [Concomitant]
     Active Substance: ACECLOFENAC
     Dosage: 100 MILLIGRAM
     Route: 065
     Dates: start: 20150119, end: 20150125
  9. DIAZEPAM [Concomitant]
     Active Substance: DIAZEPAM
     Indication: Tachycardia
     Dosage: 2.5 MILLIGRAM, TID
     Route: 065
     Dates: start: 20120206, end: 20120215
  10. DIAZEPAM [Concomitant]
     Active Substance: DIAZEPAM
     Indication: Back pain
     Dosage: 5 MILLIGRAM, TID
     Route: 065
     Dates: start: 20121022, end: 20121026
  11. DIAZEPAM [Concomitant]
     Active Substance: DIAZEPAM
     Dosage: 5 MILLIGRAM, TID
     Route: 065
     Dates: start: 20130123, end: 20130124
  12. DIAZEPAM [Concomitant]
     Active Substance: DIAZEPAM
     Dosage: 2.5 MILLIGRAM, TID
     Route: 065
     Dates: start: 20130518, end: 20130520
  13. AMOXICILLIN AND CLAVULANATE POTASSIUM [Concomitant]
     Active Substance: AMOXICILLIN\CLAVULANATE POTASSIUM
     Indication: Otitis externa
     Dosage: UNK UNK, TID
     Route: 065
     Dates: start: 20120707, end: 20120714
  14. CIPROFLOXACIN [Concomitant]
     Active Substance: CIPROFLOXACIN
     Indication: Prophylaxis
     Dosage: 500 MILLIGRAM, BID
     Route: 065
     Dates: start: 20120718, end: 20120728
  15. HYALURONIC ACID [Concomitant]
     Active Substance: HYALURONIC ACID
     Indication: Arthropathy
     Dosage: 20 UNK
     Route: 065
     Dates: start: 20131007, end: 20131007
  16. METAMIZOLE [Concomitant]
     Active Substance: METAMIZOLE
     Indication: Back pain
     Dosage: 575 MILLIGRAM, TID
     Route: 065
     Dates: start: 20130523, end: 20130529
  17. METAMIZOLE [Concomitant]
     Active Substance: METAMIZOLE
     Indication: Arthralgia
     Dosage: UNK UNK, BID
     Route: 065
     Dates: start: 20140123, end: 20140125
  18. METAMIZOLE [Concomitant]
     Active Substance: METAMIZOLE
     Dosage: 575 MILLIGRAM, TID
     Route: 065
     Dates: start: 20140123, end: 20140125
  19. METAMIZOLE [Concomitant]
     Active Substance: METAMIZOLE
     Dosage: UNK UNK, BID
     Route: 065
     Dates: start: 20140219, end: 20140220
  20. AZITHROMYCIN [Concomitant]
     Active Substance: AZITHROMYCIN
     Dosage: 500 MILLIGRAM, QD
     Route: 065
     Dates: start: 20130523, end: 20130525
  21. RIBAVIRIN [Concomitant]
     Active Substance: RIBAVIRIN
     Indication: Hepatitis C
     Dosage: 800 MILLIGRAM, BID
     Route: 065
     Dates: start: 20130612, end: 20130709
  22. RIBAVIRIN [Concomitant]
     Active Substance: RIBAVIRIN
     Dosage: 600 MILLIGRAM, BID
     Route: 065
     Dates: start: 20130710, end: 20130820
  23. RIBAVIRIN [Concomitant]
     Active Substance: RIBAVIRIN
     Dosage: 400 MILLIGRAM, BID
     Route: 065
     Dates: start: 20130821, end: 20140112
  24. PEGINTERFERON ALFA-2B [Concomitant]
     Active Substance: PEGINTERFERON ALFA-2B
     Indication: Hepatitis C
     Dosage: 100 MILLIGRAM, 1/WEEK
     Route: 065
     Dates: start: 20130612, end: 20130911
  25. PEGINTERFERON ALFA-2B [Concomitant]
     Active Substance: PEGINTERFERON ALFA-2B
     Dosage: 80 MILLIGRAM, 1/WEEK
     Route: 065
     Dates: start: 20130918, end: 20140112
  26. BOCEPREVIR [Concomitant]
     Active Substance: BOCEPREVIR
     Indication: Hepatitis C
     Dosage: 800 MILLIGRAM
     Route: 065
     Dates: start: 20130710, end: 20140112
  27. Aloclair [Concomitant]
     Indication: Odynophagia
     Dosage: 2 DOSAGE FORM, QD
     Route: 065
     Dates: start: 20131113
  28. CLOVATE GN [Concomitant]
     Dosage: 1 DOSAGE FORM
     Route: 065
     Dates: start: 20140226
  29. OMEPRAZOLE [Concomitant]
     Active Substance: OMEPRAZOLE
     Indication: Chondrocalcinosis
     Dosage: 20 MILLIGRAM, QD
     Route: 065
     Dates: start: 20140305, end: 20140307
  30. OMEPRAZOLE [Concomitant]
     Active Substance: OMEPRAZOLE
     Dosage: 20 MILLIGRAM, QD
     Route: 065
     Dates: start: 20150205, end: 20150214
  31. OMEPRAZOLE [Concomitant]
     Active Substance: OMEPRAZOLE
     Dosage: 20 MILLIGRAM, QD
     Route: 065
     Dates: start: 20150330, end: 20150405
  32. OMEPRAZOLE [Concomitant]
     Active Substance: OMEPRAZOLE
     Dosage: 20 MILLIGRAM, QD
     Route: 065
     Dates: start: 20150410, end: 20150412
  33. OMEPRAZOLE [Concomitant]
     Active Substance: OMEPRAZOLE
     Dosage: 20 MILLIGRAM, QD
     Route: 065
     Dates: start: 20150520, end: 20150524
  34. OMEPRAZOLE [Concomitant]
     Active Substance: OMEPRAZOLE
     Dosage: 20 MILLIGRAM, QD
     Route: 065
     Dates: start: 20150607, end: 20150611
  35. OMEPRAZOLE [Concomitant]
     Active Substance: OMEPRAZOLE
     Dosage: 20 MILLIGRAM, QD
     Route: 065
     Dates: start: 20141214, end: 20141219
  36. OMEPRAZOLE [Concomitant]
     Active Substance: OMEPRAZOLE
     Dosage: 20 MILLIGRAM, QD
     Route: 065
     Dates: start: 20150706, end: 20150712
  37. OMEPRAZOLE [Concomitant]
     Active Substance: OMEPRAZOLE
     Dosage: 20 MILLIGRAM, QD
     Route: 065
     Dates: start: 20150801, end: 20150804
  38. OMEPRAZOLE [Concomitant]
     Active Substance: OMEPRAZOLE
     Dosage: 20 MILLIGRAM, QD
     Route: 065
     Dates: start: 20151211, end: 20151214
  39. OMEPRAZOLE [Concomitant]
     Active Substance: OMEPRAZOLE
     Dosage: 20 MILLIGRAM, QD
     Route: 065
     Dates: start: 20160426, end: 20160508
  40. OMEPRAZOLE [Concomitant]
     Active Substance: OMEPRAZOLE
     Dosage: 20 MILLIGRAM, QD
     Route: 065
     Dates: start: 20171218, end: 20171223
  41. ACECLOFENAC [Concomitant]
     Active Substance: ACECLOFENAC
     Indication: Chondrocalcinosis
     Dosage: 1 DOSAGE FORM, BID
     Route: 065
     Dates: start: 20150205, end: 20150214
  42. ACECLOFENAC [Concomitant]
     Active Substance: ACECLOFENAC
     Dosage: 100 MILLIGRAM, BID
     Route: 065
     Dates: start: 20150330, end: 20150405
  43. ACECLOFENAC [Concomitant]
     Active Substance: ACECLOFENAC
     Dosage: 100 MILLIGRAM, BID
     Route: 065
     Dates: start: 20150410, end: 20150412
  44. ACECLOFENAC [Concomitant]
     Active Substance: ACECLOFENAC
     Dosage: 100 MILLIGRAM, BID
     Route: 065
     Dates: start: 20150520, end: 20150524
  45. ACECLOFENAC [Concomitant]
     Active Substance: ACECLOFENAC
     Dosage: 100 MILLIGRAM, BID
     Route: 065
     Dates: start: 20160426, end: 20160524
  46. ACECLOFENAC [Concomitant]
     Active Substance: ACECLOFENAC
     Dosage: 200 MILLIGRAM, BID
     Route: 065
     Dates: start: 20171218, end: 20171223
  47. TAMSULOSIN [Concomitant]
     Active Substance: TAMSULOSIN
     Dosage: 0.4 MILLIGRAM, QD
     Route: 065
     Dates: start: 20141220, end: 20141223
  48. TAMSULOSIN [Concomitant]
     Active Substance: TAMSULOSIN
     Dosage: 0.4 MILLIGRAM, QD
     Route: 065
     Dates: start: 20141229, end: 20150125
  49. TRANEXAMIC ACID [Concomitant]
     Active Substance: TRANEXAMIC ACID
     Indication: Haemorrhage
     Dosage: 100 MILLIGRAM, TID
     Route: 065
     Dates: start: 20150805, end: 20150806
  50. IBUPROFEN [Concomitant]
     Active Substance: IBUPROFEN
     Dosage: 1000 MILLIGRAM, TID
     Route: 065
     Dates: start: 20150805, end: 20150806
  51. Clamoxyl [Concomitant]
     Indication: Prophylaxis
     Dosage: 750 MILLIGRAM, TID
     Route: 065
     Dates: start: 20170119, end: 20170123
  52. SUNIDERMA [Concomitant]
     Dosage: 1 DOSAGE FORM, BID
     Route: 065
     Dates: start: 20170223, end: 20170310
  53. TERBINAFINE [Concomitant]
     Active Substance: TERBINAFINE
     Indication: Fungal infection
     Dosage: 1 DOSAGE FORM, QD
     Route: 065
     Dates: start: 20171108, end: 20171205

REACTIONS (1)
  - Haemarthrosis [Recovered/Resolved]

NARRATIVE: CASE EVENT DATE: 20130324
